FAERS Safety Report 17033667 (Version 3)
Quarter: 2020Q1

REPORT INFORMATION
  Report Type: Spontaneous
  Country: BR (occurrence: BR)
  Receive Date: 20191114
  Receipt Date: 20200213
  Transmission Date: 20200409
  Serious: Yes (Other)
  Sender: FDA-Public Use
  Company Number: BR-ELI_LILLY_AND_COMPANY-BR201911003196

PATIENT
  Sex: Female

DRUGS (4)
  1. TALTZ [Suspect]
     Active Substance: IXEKIZUMAB
     Dosage: 80 MG, MONTHLY (1/M)
     Route: 065
  2. METOTREXATE [Concomitant]
     Active Substance: METHOTREXATE SODIUM
     Indication: PRODUCT USED FOR UNKNOWN INDICATION
     Dosage: 10 MG, WEEKLY (1/W)
     Route: 048
  3. TALTZ [Suspect]
     Active Substance: IXEKIZUMAB
     Indication: PSORIASIS
     Dosage: 160 MG, OTHER
     Route: 065
     Dates: start: 20191025
  4. TALTZ [Suspect]
     Active Substance: IXEKIZUMAB
     Dosage: 80 MG, 2/M
     Route: 065

REACTIONS (9)
  - Pain [Unknown]
  - Headache [Unknown]
  - Asthenia [Unknown]
  - Malaise [Unknown]
  - Injection site irritation [Unknown]
  - Injection site inflammation [Unknown]
  - Injection site cellulitis [Recovered/Resolved]
  - Pyrexia [Unknown]
  - Fatigue [Unknown]

NARRATIVE: CASE EVENT DATE: 20191031
